FAERS Safety Report 6317587-4 (Version None)
Quarter: 2009Q3

REPORT INFORMATION
  Report Type: 
  Country: None (occurrence: None)
  Receive Date: 20090821
  Receipt Date: 20090813
  Transmission Date: 20100115
  Serious: Yes (Other)
  Sender: FDA-Public Use
  Company Number: US-ROCHE-650600

PATIENT
  Age: 80 Year
  Sex: Male

DRUGS (1)
  1. XELODA [Suspect]
     Dosage: CURRENTLY AT (1 GM/METER) TWICE DAILY
     Route: 065
     Dates: start: 20090301

REACTIONS (1)
  - HAEMOLYTIC ANAEMIA [None]
